FAERS Safety Report 24571677 (Version 6)
Quarter: 2025Q1

REPORT INFORMATION
  Report Type: Spontaneous
  Country: CL (occurrence: CL)
  Receive Date: 20241101
  Receipt Date: 20250218
  Transmission Date: 20250409
  Serious: No
  Sender: PFIZER
  Company Number: CL-PFIZER INC-202400285236

PATIENT
  Age: 16 Year
  Sex: Male
  Weight: 68 kg

DRUGS (1)
  1. GENOTROPIN [Suspect]
     Active Substance: SOMATROPIN
     Indication: Growth disorder
     Dosage: 2 ML, 1X/DAY
     Route: 058
     Dates: start: 20220714

REACTIONS (4)
  - Expired device used [Unknown]
  - Device defective [Unknown]
  - Device power source issue [Unknown]
  - Product prescribing error [Unknown]

NARRATIVE: CASE EVENT DATE: 20241021
